FAERS Safety Report 14117333 (Version 4)
Quarter: 2017Q4

REPORT INFORMATION
  Report Type: Spontaneous
  Country: JP (occurrence: JP)
  Receive Date: 20171023
  Receipt Date: 20171122
  Transmission Date: 20180321
  Serious: Yes (Death, Hospitalization, Other)
  Sender: FDA-Public Use
  Company Number: JP-ALLERGAN-1759984US

PATIENT
  Age: 54 Year
  Sex: Female

DRUGS (6)
  1. BOTOX [Suspect]
     Active Substance: ONABOTULINUMTOXINA
     Indication: FACIAL SPASM
     Dosage: 22.5 UNITS, SINGLE
     Route: 030
     Dates: start: 20170619, end: 20170619
  2. BOTOX [Suspect]
     Active Substance: ONABOTULINUMTOXINA
     Dosage: 17.5 UNITS, SINGLE
     Route: 030
     Dates: start: 20170313, end: 20170313
  3. LATANOPROST. [Concomitant]
     Active Substance: LATANOPROST
     Dosage: UNK
  4. LATANOPROST. [Concomitant]
     Active Substance: LATANOPROST
     Indication: PRODUCT USED FOR UNKNOWN INDICATION
     Route: 065
  5. BOTOX [Suspect]
     Active Substance: ONABOTULINUMTOXINA
     Dosage: 15 UNITS, SINGLE
     Route: 030
     Dates: start: 20161121, end: 20161121
  6. BOTOX [Suspect]
     Active Substance: ONABOTULINUMTOXINA
     Indication: BLEPHAROSPASM
     Dosage: 15 UNITS, SINGLE
     Route: 030
     Dates: start: 20160314, end: 20160314

REACTIONS (13)
  - Pneumonia [Fatal]
  - Eyelid oedema [Unknown]
  - Conjunctival hyperaemia [Unknown]
  - Wheezing [Unknown]
  - Condition aggravated [Unknown]
  - Eyelid ptosis [Unknown]
  - Sudden death [Fatal]
  - Cardiac arrest [Fatal]
  - Respiratory failure [Fatal]
  - Blepharospasm [Unknown]
  - Extraocular muscle disorder [Unknown]
  - Eye contusion [Unknown]
  - Eye discharge [Unknown]

NARRATIVE: CASE EVENT DATE: 2016
